FAERS Safety Report 4742931-9 (Version None)
Quarter: 2005Q3

REPORT INFORMATION
  Report Type: 
  Country: None (occurrence: None)
  Receive Date: 20050810
  Receipt Date: 20050810
  Transmission Date: 20060218
  Serious: Yes (Other)
  Sender: FDA-Public Use
  Company Number: None

PATIENT
  Age: 54 Year
  Sex: Female
  Weight: 106.5953 kg

DRUGS (3)
  1. EFFEXOR XR [Suspect]
     Indication: DEPRESSION
     Dosage: 1  DAILY  ORAL
     Route: 048
     Dates: start: 19990419, end: 20050710
  2. HYPERTENSION MEDS [Concomitant]
  3. HORMONE THERAPY [Concomitant]

REACTIONS (8)
  - ASTHENIA [None]
  - DIARRHOEA [None]
  - DRUG DEPENDENCE [None]
  - ELECTRIC SHOCK [None]
  - HALLUCINATION, AUDITORY [None]
  - HYPERHIDROSIS [None]
  - NERVOUS SYSTEM DISORDER [None]
  - TREMOR [None]
